FAERS Safety Report 12718077 (Version 3)
Quarter: 2016Q4

REPORT INFORMATION
  Report Type: Report from Study
  Country: JP (occurrence: JP)
  Receive Date: 20160906
  Receipt Date: 20161229
  Transmission Date: 20170207
  Serious: Yes (Death, Disabling, Other)
  Sender: FDA-Public Use
  Company Number: JP-BRISTOL-MYERS SQUIBB COMPANY-BMS-2016-072760

PATIENT
  Age: 83 Year
  Sex: Male
  Weight: 52.3 kg

DRUGS (4)
  1. TRAMCET [Concomitant]
     Active Substance: ACETAMINOPHEN\TRAMADOL
     Indication: SPINAL COMPRESSION FRACTURE
     Dosage: 4 TAB, UNK
     Route: 065
     Dates: start: 20160809, end: 20160818
  2. IPILIMUMAB [Suspect]
     Active Substance: IPILIMUMAB
     Indication: PRODUCT USED FOR UNKNOWN INDICATION
     Dosage: 3 MG/KG, UNK
     Route: 065
     Dates: start: 20160812
  3. IPILIMUMAB [Suspect]
     Active Substance: IPILIMUMAB
     Indication: PRODUCT USED FOR UNKNOWN INDICATION
     Dosage: 3 MG/KG, UNK
     Route: 041
     Dates: start: 20160810
  4. IPILIMUMAB [Suspect]
     Active Substance: IPILIMUMAB
     Indication: MALIGNANT MELANOMA
     Dosage: UNK MG/KG, UNK
     Route: 041
     Dates: start: 20151124

REACTIONS (3)
  - Malignant neoplasm progression [Fatal]
  - Pyrexia [Recovering/Resolving]
  - C-reactive protein increased [Recovered/Resolved]

NARRATIVE: CASE EVENT DATE: 201608
